FAERS Safety Report 4942014-9 (Version None)
Quarter: 2006Q1

REPORT INFORMATION
  Report Type: 
  Country: None (occurrence: None)
  Receive Date: 20060308
  Receipt Date: 20060227
  Transmission Date: 20060701
  Serious: Yes (Other)
  Sender: FDA-Public Use
  Company Number: 2006020998

PATIENT
  Age: 31 Year
  Sex: Female

DRUGS (1)
  1. NEOSPORIN [Suspect]
     Indication: LACERATION
     Dosage: TOPICAL
     Route: 061
     Dates: start: 20050801

REACTIONS (5)
  - ALLERGY TEST POSITIVE [None]
  - ANAPHYLACTIC REACTION [None]
  - DYSPNOEA [None]
  - SWELLING [None]
  - URTICARIA [None]
